FAERS Safety Report 21110005 (Version 1)
Quarter: 2022Q3

REPORT INFORMATION
  Report Type: Spontaneous
  Country: US (occurrence: None)
  Receive Date: 20220720
  Receipt Date: 20220720
  Transmission Date: 20221027
  Serious: Yes (Hospitalization)
  Sender: FDA-Public Use
  Company Number: None

PATIENT
  Sex: Female

DRUGS (6)
  1. TACROLIMUS [Suspect]
     Active Substance: TACROLIMUS
     Indication: Renal transplant
     Dosage: TAKE 2 CAPSULES BY MOUTH IN THE MORNING AND TAKE 1 CAPSULE BY MOUTH IN THE EVENING?
     Route: 048
     Dates: start: 20210317
  2. LEVOTHYROXIN TAB [Concomitant]
  3. METOPROL SUC TAB ER [Concomitant]
  4. MYCOPHENOLATE MOFETIL [Concomitant]
     Active Substance: MYCOPHENOLATE MOFETIL
  5. SIMVASTATIN [Concomitant]
     Active Substance: SIMVASTATIN
  6. TACROLIMUS [Concomitant]
     Active Substance: TACROLIMUS

REACTIONS (3)
  - Diarrhoea [None]
  - Vomiting [None]
  - Urinary tract infection [None]
